FAERS Safety Report 18533125 (Version 1)
Quarter: 2020Q4

REPORT INFORMATION
  Report Type: Report from Study
  Country: US (occurrence: US)
  Receive Date: 20201123
  Receipt Date: 20201123
  Transmission Date: 20210114
  Serious: Yes (Other)
  Sender: FDA-Public Use
  Company Number: US-TEVA-2020-US-1852148

PATIENT
  Age: 73 Year
  Sex: Female
  Weight: 85.91 kg

DRUGS (26)
  1. SANCUSO [Concomitant]
     Active Substance: GRANISETRON
     Indication: NAUSEA
     Dosage: AS NEEDED (3.1 MG,1 IN 7 D)
     Route: 062
     Dates: start: 20150815
  2. CARAFATE [Concomitant]
     Active Substance: SUCRALFATE
     Indication: GASTRITIS
     Dosage: 3 GRAM DAILY; 3 GM (1 GM,3 IN 1 D)
     Route: 048
     Dates: start: 20150822
  3. OMEPRAZOLE. [Concomitant]
     Active Substance: OMEPRAZOLE
     Indication: GASTRITIS
     Dosage: 40 MILLIGRAM DAILY; 40 MG (20 MG,2 IN 1 D)
     Route: 048
     Dates: start: 20150822
  4. EMLA TOPICAL CREAM [Concomitant]
     Indication: PAIN
     Route: 061
     Dates: start: 20150428
  5. DOXORUBICIN [Suspect]
     Active Substance: DOXORUBICIN
     Dosage: DAY 1 OF FOUR 14-DAY CYCLES DURING CHEMOTHERAPY SEGMENT 2 (50 MG/M2)
     Route: 042
     Dates: start: 20150917, end: 20150917
  6. CYCLOPHOSPHAMIDE. [Suspect]
     Active Substance: CYCLOPHOSPHAMIDE
     Indication: TRIPLE NEGATIVE BREAST CANCER
     Dosage: DAY 1 OF FOUR 14-DAY CYCLES DURING CHEMOTHERAPY SEGMENT 2 (600 MG/M2)
     Route: 042
     Dates: start: 20150729, end: 20150827
  7. CARVEDILOL. [Concomitant]
     Active Substance: CARVEDILOL
     Indication: HYPERTENSION
     Dosage: 25 MILLIGRAM DAILY; CARVEDILOL  25 MG (12.5 MG,2 IN 1 D)
     Route: 048
     Dates: start: 20150430
  8. SIMVASTATIN. [Concomitant]
     Active Substance: SIMVASTATIN
     Indication: HYPERLIPIDAEMIA
     Dosage: 20 MILLIGRAM DAILY; SIMVASTATIN 25 MG (20 MG,1 IN 1 D)
     Route: 048
     Dates: start: 201001
  9. ATIVAN [Concomitant]
     Active Substance: LORAZEPAM
     Indication: NAUSEA
     Route: 048
     Dates: start: 20150427
  10. MOBIC [Concomitant]
     Active Substance: MELOXICAM
     Indication: MUSCULOSKELETAL PAIN
     Dosage: (1 TABLET,AS REQUIRED)
     Route: 048
     Dates: start: 20150729
  11. ATIVAN [Concomitant]
     Active Substance: LORAZEPAM
     Indication: VOMITING
  12. PROMETHAZINE [Concomitant]
     Active Substance: PROMETHAZINE HYDROCHLORIDE
     Indication: VOMITING
  13. OMEPRAZOLE. [Concomitant]
     Active Substance: OMEPRAZOLE
     Indication: DYSPEPSIA
  14. DOXORUBICIN [Suspect]
     Active Substance: DOXORUBICIN
     Indication: TRIPLE NEGATIVE BREAST CANCER
     Dosage: DAY 1 OF FOUR 14-DAY CYCLES DURING CHEMOTHERAPY SEGMENT 2 (60 MG/M2)
     Route: 042
     Dates: start: 20150729, end: 20150827
  15. ZOFRAN [Concomitant]
     Active Substance: ONDANSETRON HYDROCHLORIDE
     Dosage: DOSE: 4-8 MG (AS REQUIRED)
     Route: 048
     Dates: start: 20150416
  16. PERCOCET [Concomitant]
     Active Substance: ACETAMINOPHEN\OXYCODONE HYDROCHLORIDE
     Indication: MUSCULOSKELETAL PAIN
     Dosage: DOSE: 5/325 MG (AS REQUIRED)
     Route: 048
     Dates: start: 20150519
  17. TRAMADOL. [Concomitant]
     Active Substance: TRAMADOL
     Indication: MUSCULOSKELETAL PAIN
     Dosage: (50 MG,AS REQUIRED)
     Route: 048
     Dates: start: 20150813
  18. CYCLOPHOSPHAMIDE. [Suspect]
     Active Substance: CYCLOPHOSPHAMIDE
     Dosage: DAY 1 OF FOUR 14-DAY CYCLES DURING CHEMOTHERAPY SEGMENT 2 (500 MG/M2)
     Route: 042
     Dates: start: 20150917, end: 20150917
  19. PROMETHAZINE [Concomitant]
     Active Substance: PROMETHAZINE HYDROCHLORIDE
     Indication: NAUSEA
     Route: 048
     Dates: start: 20150416
  20. IMODIUM [Concomitant]
     Active Substance: LOPERAMIDE HYDROCHLORIDE
     Indication: DIARRHOEA
     Dosage: (2 MG,AS REQUIRED)
     Route: 048
     Dates: start: 20150813
  21. PACLITAXEL. [Suspect]
     Active Substance: PACLITAXEL
     Indication: TRIPLE NEGATIVE BREAST CANCER
     Route: 042
     Dates: start: 20150428, end: 20150714
  22. TYLENOL [Concomitant]
     Active Substance: ACETAMINOPHEN
     Indication: HEADACHE
     Route: 048
     Dates: start: 201001
  23. ZOFRAN [Concomitant]
     Active Substance: ONDANSETRON HYDROCHLORIDE
     Indication: NAUSEA
     Route: 042
     Dates: start: 20150804, end: 20150804
  24. LEXAPRO [Concomitant]
     Active Substance: ESCITALOPRAM OXALATE
     Indication: DEPRESSED MOOD
     Dosage: 20 MG (20 MG,1 IN 1 D)
     Route: 048
     Dates: start: 20150619
  25. SANCUSO [Concomitant]
     Active Substance: GRANISETRON
     Indication: VOMITING
  26. VALSARTAN. [Concomitant]
     Active Substance: VALSARTAN
     Indication: HYPERTENSION
     Dosage: 160 MILLIGRAM DAILY; 160 MG (160 MG,1 IN 1 D)
     Route: 048
     Dates: start: 20150829

REACTIONS (1)
  - Myelodysplastic syndrome [Not Recovered/Not Resolved]

NARRATIVE: CASE EVENT DATE: 20181107
